FAERS Safety Report 20830331 (Version 1)
Quarter: 2022Q2

REPORT INFORMATION
  Report Type: Spontaneous
  Country: FR (occurrence: FR)
  Receive Date: 20220514
  Receipt Date: 20220514
  Transmission Date: 20220720
  Serious: Yes (Hospitalization, Other)
  Sender: FDA-Public Use
  Company Number: None

PATIENT
  Age: 45 Year
  Sex: Female

DRUGS (3)
  1. LETROZOLE [Suspect]
     Active Substance: LETROZOLE
     Indication: Invasive ductal breast carcinoma
     Dosage: 2.5 MG, DURATION : 446 DAYS
     Route: 048
     Dates: start: 20201022, end: 20220111
  2. ENANTONE LP [Suspect]
     Active Substance: LEUPROLIDE ACETATE
     Indication: Invasive ductal breast carcinoma
     Dosage: UNIT DOSE:3.75 MG, ENANTONE L.P. 3.75 MG, POWDER AND SOLVENT FOR SUSPENSION FOR INJECTION (S.C. OR I
     Route: 058
     Dates: start: 20210303, end: 20220111
  3. VALPROATE SODIUM [Concomitant]
     Active Substance: VALPROATE SODIUM
     Indication: Epilepsy
     Dosage: UNIT DOSE:2 DF, STRENGTH : 500 MG
     Route: 048
     Dates: start: 2018

REACTIONS (2)
  - Hepatic steatosis [Recovering/Resolving]
  - Hepatic cytolysis [Recovered/Resolved]

NARRATIVE: CASE EVENT DATE: 20211121
